FAERS Safety Report 14149256 (Version 1)
Quarter: 2017Q4

REPORT INFORMATION
  Report Type: Spontaneous
  Country: US (occurrence: US)
  Receive Date: 20171101
  Receipt Date: 20171101
  Transmission Date: 20180321
  Serious: No
  Sender: FDA-Public Use
  Company Number: US-TRIS PHARMA, INC-2017TRISPO00438

PATIENT

DRUGS (2)
  1. DEXTROMETHORPHAN POLISTIREX [Suspect]
     Active Substance: DEXTROMETHORPHAN HYDROBROMIDE
     Indication: NASOPHARYNGITIS
     Dosage: 10 ML, BID (EVERY 12 HOURS)
     Route: 048
     Dates: start: 20171015, end: 20171015
  2. DEXTROMETHORPHAN POLISTIREX [Suspect]
     Active Substance: DEXTROMETHORPHAN HYDROBROMIDE
     Indication: COUGH
     Dosage: 10 ML, BID (EVERY 12 HOURS)
     Route: 048
     Dates: start: 201710, end: 201710

REACTIONS (4)
  - Abdominal discomfort [Recovering/Resolving]
  - Product expiration date issue [None]
  - Diarrhoea [Recovering/Resolving]
  - Product lot number issue [None]

NARRATIVE: CASE EVENT DATE: 201710
